FAERS Safety Report 5580595-5 (Version None)
Quarter: 2007Q4

REPORT INFORMATION
  Report Type: 
  Country: None (occurrence: None)
  Receive Date: 20071130
  Receipt Date: 20070710
  Transmission Date: 20080405
  Serious: No
  Sender: FDA-Public Use
  Company Number: US200707002711

PATIENT
  Age: 57 Year
  Sex: Female

DRUGS (9)
  1. BYETTA [Suspect]
     Indication: TYPE 2 DIABETES MELLITUS
     Dosage: 5 UG, 2/D, SUBCUTANEOUS
     Route: 058
     Dates: start: 20070622
  2. TRICOR [Concomitant]
  3. URELLE (HYOSCYAMINE SULFATE, METHENAMINE, METHYLTHIONINIUM CHLORIDE, P [Concomitant]
  4. ALTACE [Concomitant]
  5. CALTRATE (CALCIUM, VITAMIN D NOS) [Concomitant]
  6. SYNTHROID [Concomitant]
  7. BENICAR [Concomitant]
  8. OXYCODONE HCL [Concomitant]
  9. CLONAZEPAM [Concomitant]

REACTIONS (7)
  - ASTHENIA [None]
  - DECREASED APPETITE [None]
  - FATIGUE [None]
  - INJECTION SITE BRUISING [None]
  - INJECTION SITE HAEMORRHAGE [None]
  - INJECTION SITE PAIN [None]
  - MUSCLE SPASMS [None]
